FAERS Safety Report 13441567 (Version 3)
Quarter: 2017Q2

REPORT INFORMATION
  Report Type: Spontaneous
  Country: US (occurrence: US)
  Receive Date: 20170413
  Receipt Date: 20170623
  Transmission Date: 20170830
  Serious: Yes (Hospitalization, Other)
  Sender: FDA-Public Use
  Company Number: US-AEGERION PHARMACEUTICAL, INC-AEGR003115

PATIENT
  Age: 44 Year
  Sex: Female
  Weight: 97.51 kg

DRUGS (2)
  1. MYALEPT [Suspect]
     Active Substance: METRELEPTIN
     Indication: CONGENITAL GENERALISED LIPODYSTROPHY
     Dosage: 5 MG, QD
     Route: 058
     Dates: end: 20170404
  2. MYALEPT [Suspect]
     Active Substance: METRELEPTIN
     Dosage: 5 MG, QD
     Route: 058
     Dates: start: 20170422, end: 201705

REACTIONS (10)
  - Systemic lupus erythematosus [Unknown]
  - Injection site pain [Unknown]
  - Retching [Not Recovered/Not Resolved]
  - Injection site urticaria [Unknown]
  - Nausea [Not Recovered/Not Resolved]
  - Diabetic ketoacidosis [Unknown]
  - Therapy cessation [Unknown]
  - Blood glucose increased [Unknown]
  - Weight decreased [Unknown]
  - Injection site infection [Unknown]

NARRATIVE: CASE EVENT DATE: 2017
